FAERS Safety Report 9613109 (Version 1)
Quarter: 2013Q3

REPORT INFORMATION
  Report Type: Spontaneous
  Country: US (occurrence: None)
  Receive Date: 20130918
  Receipt Date: 20130918
  Transmission Date: 20140515
  Serious: Yes (Other)
  Sender: FDA-Public Use
  Company Number: 2013037995

PATIENT
  Sex: Female
  Weight: 54.43 kg

DRUGS (12)
  1. ZEMAIRA [Suspect]
     Route: 042
  2. SPIRIVA (TIOTROPIUM BROMIDE) [Concomitant]
  3. ALBUTEROL (SALBUTAMOL) [Concomitant]
  4. DIPHENHYDRAMINE (DIPHENHYDRAMINE) [Concomitant]
  5. EPINEPHRINE (EPINEPHRINE) [Concomitant]
  6. HEPARIN (HEPARIN) [Concomitant]
  7. LIDOCAINE (LIDOCAINE) [Concomitant]
  8. NORMAL SALINE (SODIUM CHLORIDE) [Concomitant]
  9. CEPHALEXIN (CEPHALEXIN) [Concomitant]
  10. XALATAN  (LATANOPROST) [Concomitant]
  11. OXYGEN (OXYGEN) [Concomitant]
  12. ADVAIR (SERETIDE) [Concomitant]

REACTIONS (1)
  - Lung disorder [None]
